FAERS Safety Report 16610495 (Version 1)
Quarter: 2019Q3

REPORT INFORMATION
  Report Type: Spontaneous
  Country: US (occurrence: US)
  Receive Date: 20190722
  Receipt Date: 20190722
  Transmission Date: 20191004
  Serious: No
  Sender: FDA-Public Use
  Company Number: US-OSMOTICA_PHARMACEUTICAL_US_LLC-POI0573201800161

PATIENT
  Age: 52 Year
  Sex: Female

DRUGS (7)
  1. HAIR AND NAIL SUPPLEMENTS [Concomitant]
     Indication: NUTRITIONAL SUPPLEMENTATION
  2. DIVIGEL [Suspect]
     Active Substance: ESTRADIOL
     Indication: MOOD SWINGS
  3. DIVIGEL [Suspect]
     Active Substance: ESTRADIOL
     Indication: HOT FLUSH
     Route: 062
  4. VITAMIN D [Concomitant]
     Active Substance: VITAMIN D NOS
     Indication: PRODUCT USED FOR UNKNOWN INDICATION
  5. CALCIUM [Concomitant]
     Active Substance: CALCIUM
     Indication: PRODUCT USED FOR UNKNOWN INDICATION
  6. MONISTAT [Concomitant]
     Active Substance: MICONAZOLE NITRATE
     Indication: SEASONAL ALLERGY
  7. VENLAFAXINE [Concomitant]
     Active Substance: VENLAFAXINE HYDROCHLORIDE
     Indication: MOOD SWINGS

REACTIONS (1)
  - Alopecia [Not Recovered/Not Resolved]

NARRATIVE: CASE EVENT DATE: 201801
